FAERS Safety Report 5968291-3 (Version None)
Quarter: 2008Q4

REPORT INFORMATION
  Report Type: 
  Country: None (occurrence: None)
  Receive Date: 20081126
  Receipt Date: 20081114
  Transmission Date: 20090506
  Serious: No
  Sender: FDA-Public Use
  Company Number: JP-PFIZER INC-2008094667

PATIENT

DRUGS (1)
  1. ZYVOX [Suspect]

REACTIONS (1)
  - NO ADVERSE EVENT [None]
